FAERS Safety Report 7529318-0 (Version None)
Quarter: 2011Q2

REPORT INFORMATION
  Report Type: 
  Country: None (occurrence: None)
  Receive Date: 20110607
  Receipt Date: 20110527
  Transmission Date: 20111010
  Serious: Yes (Other)
  Sender: FDA-Public Use
  Company Number: US-ROCHE-780706

PATIENT
  Sex: Female

DRUGS (1)
  1. CAPECITABINE [Suspect]
     Dosage: FORM: PILL
     Route: 048

REACTIONS (5)
  - PULMONARY THROMBOSIS [None]
  - LUNG DISORDER [None]
  - PULMONARY OEDEMA [None]
  - THROMBOSIS [None]
  - PALMAR-PLANTAR ERYTHRODYSAESTHESIA SYNDROME [None]
